FAERS Safety Report 8747650 (Version 3)
Quarter: 2013Q4

REPORT INFORMATION
  Report Type: Spontaneous
  Country: US (occurrence: US)
  Receive Date: 20120827
  Receipt Date: 20131231
  Transmission Date: 20140711
  Serious: Yes (Hospitalization, Other)
  Sender: FDA-Public Use
  Company Number: US-009507513-1208USA008465

PATIENT
  Sex: Female
  Weight: 113.38 kg

DRUGS (1)
  1. NUVARING [Suspect]
     Indication: CONTRACEPTION
     Dosage: UNK
     Route: 067
     Dates: start: 2007, end: 20110824

REACTIONS (14)
  - Chest pain [Recovered/Resolved]
  - Ischaemic stroke [Unknown]
  - Drug abuse [Unknown]
  - Antinuclear antibody positive [Unknown]
  - Back pain [Unknown]
  - Fibrin D dimer increased [Unknown]
  - Hypertension [Unknown]
  - Dyspnoea [Unknown]
  - Sleep disorder [Unknown]
  - Depression [Unknown]
  - Anxiety [Unknown]
  - Fall [Unknown]
  - Ligament injury [Unknown]
  - Obesity [Unknown]
